FAERS Safety Report 5553324-9 (Version None)
Quarter: 2007Q4

REPORT INFORMATION
  Report Type: 
  Country: None (occurrence: None)
  Receive Date: 20071213
  Receipt Date: 20071210
  Transmission Date: 20080405
  Serious: Yes (Death, Other)
  Sender: FDA-Public Use
  Company Number: US-RB-008761-07

PATIENT
  Age: 23 Year
  Sex: Female

DRUGS (1)
  1. SUBOXONE [Suspect]
     Indication: DRUG USE FOR UNKNOWN INDICATION
     Dosage: DOSAGE TAKEN IS UNKNOWN, REPORT INDICATES INGESTION OF SUBOXONE, EXACT ROUTE UNKNOWN.
     Route: 065
     Dates: end: 20070101

REACTIONS (19)
  - ACIDOSIS [None]
  - AGITATION [None]
  - CARDIAC ARREST [None]
  - CARDIAC ENZYMES INCREASED [None]
  - COMA [None]
  - COMPLETED SUICIDE [None]
  - CONDUCTION DISORDER [None]
  - CONFUSIONAL STATE [None]
  - CONVULSION [None]
  - ERYTHEMA [None]
  - HALLUCINATION [None]
  - HEPATIC ENZYME ABNORMAL [None]
  - HYPERGLYCAEMIA [None]
  - HYPERHIDROSIS [None]
  - IRRITABILITY [None]
  - MUSCLE RIGIDITY [None]
  - PYREXIA [None]
  - VENTRICULAR FIBRILLATION [None]
  - VENTRICULAR TACHYCARDIA [None]
